FAERS Safety Report 7541563-7 (Version None)
Quarter: 2011Q2

REPORT INFORMATION
  Report Type: 
  Country: None (occurrence: None)
  Receive Date: 20110613
  Receipt Date: 20110610
  Transmission Date: 20111010
  Serious: No
  Sender: FDA-Public Use
  Company Number: US-PFIZER INC-2011127738

PATIENT
  Sex: Male

DRUGS (4)
  1. CHANTIX [Concomitant]
     Dosage: UNK
     Route: 048
  2. CARDURA [Suspect]
     Dosage: 4 MG, DAILY
     Route: 048
     Dates: start: 20110101
  3. CARDURA [Suspect]
     Indication: PROSTATIC DISORDER
     Dosage: 1 MG, 1X/DAY
     Route: 048
     Dates: start: 20110101
  4. PRAVACHOL [Concomitant]
     Indication: BLOOD CHOLESTEROL INCREASED
     Dosage: 40 MG, DAILY
     Route: 048

REACTIONS (2)
  - INCORRECT DOSE ADMINISTERED [None]
  - FATIGUE [None]
